APPROVED DRUG PRODUCT: BENZTROPINE MESYLATE
Active Ingredient: BENZTROPINE MESYLATE
Strength: 0.5MG
Dosage Form/Route: TABLET;ORAL
Application: A089211 | Product #001
Applicant: USL PHARMA INC
Approved: Jun 14, 1988 | RLD: No | RS: No | Type: DISCN